FAERS Safety Report 8023325-X (Version None)
Quarter: 2012Q1

REPORT INFORMATION
  Report Type: 
  Country: None (occurrence: None)
  Receive Date: 20120104
  Receipt Date: 20120103
  Transmission Date: 20120608
  Serious: Yes (Hospitalization)
  Sender: FDA-Public Use
  Company Number: FR-ROCHE-1027152

PATIENT
  Age: 54 Year
  Sex: Female

DRUGS (9)
  1. ALDACTONE [Concomitant]
  2. LEVOTHYROXINE SODIUM [Concomitant]
  3. METHOTREXATE [Concomitant]
  4. MABTHERA [Suspect]
     Indication: PRODUCT USED FOR UNKNOWN INDICATION
     Dates: start: 20110715, end: 20110815
  5. BISOPROLOL FUMARATE [Concomitant]
  6. PERINDOPRIL ERBUMINE [Concomitant]
  7. POTASSIUM CHLORIDE [Concomitant]
  8. PREDNISONE TAB [Concomitant]
  9. NEXIUM [Concomitant]

REACTIONS (1)
  - ISCHAEMIC STROKE [None]
